FAERS Safety Report 8901282 (Version 2)
Quarter: 2014Q1

REPORT INFORMATION
  Report Type: Spontaneous
  Country: US (occurrence: US)
  Receive Date: 20121108
  Receipt Date: 20140107
  Transmission Date: 20141002
  Serious: Yes (Death, Hospitalization)
  Sender: FDA-Public Use
  Company Number: US-B.I. PHARMACEUTICALS,INC./RIDGEFIELD-2012-BP-27353BP

PATIENT
  Sex: Female
  Weight: 55.79 kg

DRUGS (9)
  1. PRADAXA [Suspect]
     Indication: ATRIAL FIBRILLATION
     Dosage: 150 MG
     Dates: start: 20111017, end: 201203
  2. PEPCID [Concomitant]
     Dosage: 40 MG
     Route: 048
  3. TYLENOL-CODEINE NO. 3 [Concomitant]
     Route: 048
  4. FOSAMAX [Concomitant]
     Dosage: 10 MG
  5. LOVASTATIN [Concomitant]
     Dosage: 40 MG
     Route: 048
  6. LASIX [Concomitant]
     Dosage: 20 MG
     Route: 048
  7. ATENOLOL [Concomitant]
     Dosage: 100 MG
     Route: 048
  8. DONEPEZIL HCL [Concomitant]
     Indication: DEMENTIA ALZHEIMER^S TYPE
     Dosage: 100 MG
     Route: 048
  9. NITROGLYCERIN [Concomitant]
     Route: 060

REACTIONS (3)
  - Cerebrovascular accident [Fatal]
  - Transient ischaemic attack [Unknown]
  - Haematochezia [Unknown]
